FAERS Safety Report 5075539-9 (Version None)
Quarter: 2006Q3

REPORT INFORMATION
  Report Type: 
  Country: None (occurrence: None)
  Receive Date: 20060804
  Receipt Date: 20060721
  Transmission Date: 20061208
  Serious: Yes (Other)
  Sender: FDA-Public Use
  Company Number: S06-FIN-01353-01

PATIENT
  Age: 32 Year
  Sex: Male

DRUGS (9)
  1. ESCITALOPRAM OXALATE [Suspect]
     Indication: PANIC DISORDER
     Dates: start: 20050901, end: 20051201
  2. FRAGMIN [Concomitant]
  3. FRAGMIN-MAREVAN (WARFARIN) [Concomitant]
  4. ALPRAZOLAM [Concomitant]
  5. VOLTAREN [Concomitant]
  6. BURANA (IBUPROFEN) [Concomitant]
  7. PANACOD [Concomitant]
  8. DOLAN [Concomitant]
  9. PARA-TABS (PARACETAMOL) [Concomitant]

REACTIONS (10)
  - AURA [None]
  - CEREBRAL INFARCTION [None]
  - DEPRESSION [None]
  - HEPATITIS [None]
  - HEPATOTOXICITY [None]
  - MUSCULOSKELETAL DISCOMFORT [None]
  - NECK PAIN [None]
  - PARAESTHESIA [None]
  - VERTEBROBASILAR INSUFFICIENCY [None]
  - VISUAL DISTURBANCE [None]
